FAERS Safety Report 6915728-9 (Version None)
Quarter: 2010Q3

REPORT INFORMATION
  Report Type: 
  Country: None (occurrence: None)
  Receive Date: 20100810
  Receipt Date: 20100802
  Transmission Date: 20110219
  Serious: Yes (Hospitalization)
  Sender: FDA-Public Use
  Company Number: US-NOVOPROD-312441

PATIENT
  Sex: Male
  Weight: 131.52 kg

DRUGS (33)
  1. VICTOZA [Suspect]
     Indication: TYPE 2 DIABETES MELLITUS
     Dosage: UNK
     Route: 058
     Dates: start: 20100525
  2. NOVOLOG [Concomitant]
     Indication: TYPE 2 DIABETES MELLITUS
     Dosage: SLIDING SCALE
     Route: 058
  3. LANTUS [Concomitant]
     Indication: TYPE 2 DIABETES MELLITUS
     Dosage: 75 U, QD
     Route: 058
  4. PANTOPRAZOLE                       /01263202/ [Concomitant]
     Indication: DUODENITIS
     Dosage: 40 MG, QD
     Route: 048
  5. PANTOPRAZOLE                       /01263202/ [Concomitant]
     Indication: GASTRITIS
  6. PANTOPRAZOLE                       /01263202/ [Concomitant]
     Indication: GASTROOESOPHAGEAL REFLUX DISEASE
  7. UROXATRAL [Concomitant]
     Indication: BENIGN PROSTATIC HYPERPLASIA
     Dosage: 10 MG, QD
     Route: 048
  8. TIGAN [Concomitant]
     Indication: NAUSEA
     Dosage: PRN
     Route: 048
  9. PENTASA [Concomitant]
     Dosage: 500 MG, 2 CAPS TID
     Route: 048
  10. PLAVIX [Concomitant]
     Indication: PROPHYLAXIS
     Dosage: 75 MG, QD
     Route: 048
  11. ASPIRIN [Concomitant]
     Indication: PROPHYLAXIS
     Dosage: 325 MG, QD
     Route: 048
  12. TOPAMAX [Concomitant]
     Indication: MIGRAINE
     Dosage: 100 MG, TID
     Route: 048
  13. PERCOCET [Concomitant]
     Indication: MIGRAINE
     Dosage: 10/325 MG
     Route: 048
  14. PERCOCET [Concomitant]
     Indication: PAIN
  15. PERCOCET [Concomitant]
     Indication: BACK PAIN
  16. METHADONE                          /00068902/ [Concomitant]
     Indication: PAIN
     Dosage: 20 MG, UNK
     Route: 048
  17. LOPID [Concomitant]
     Indication: BLOOD CHOLESTEROL INCREASED
     Dosage: 600 MG, QD
     Route: 048
  18. LOPID [Concomitant]
     Indication: BLOOD TRIGLYCERIDES INCREASED
  19. NIASPAN [Concomitant]
     Indication: BLOOD CHOLESTEROL INCREASED
     Dosage: 1000 MG, QD
     Route: 048
  20. CIALIS [Concomitant]
     Indication: PRODUCT USED FOR UNKNOWN INDICATION
     Dosage: UNK
     Route: 048
  21. DIOVAN HCT [Concomitant]
     Indication: HYPERTENSION
     Dosage: 80/12.5 MG PRN
     Route: 048
  22. ZYRTEC-D 12 HOUR [Concomitant]
     Indication: RHINITIS ALLERGIC
     Dosage: PRN
     Route: 048
  23. ALBUTEROL [Concomitant]
     Indication: ASTHMA
     Dosage: QID PRN VIA NEBULIZER
     Route: 055
  24. ATROVENT [Concomitant]
     Indication: ASTHMA
     Dosage: QID PRN
     Route: 055
  25. HYCODAN                            /00060002/ [Concomitant]
     Indication: COUGH
     Dosage: 10 ML Q6H PRN
     Route: 048
  26. SINGULAIR [Concomitant]
     Indication: RHINITIS ALLERGIC
     Dosage: 10 MG, QD
     Route: 048
  27. SINGULAIR [Concomitant]
     Indication: ASTHMA
  28. LASIX [Concomitant]
     Indication: OEDEMA
     Dosage: 40 MG, PRN
     Route: 048
  29. SPIRONOLACTONE [Concomitant]
     Indication: BLOOD POTASSIUM
     Dosage: 20 MG PRN
     Route: 048
  30. CLONOPIN [Concomitant]
     Indication: ANXIETY
     Dosage: 1 MG, Q6H PRN
     Route: 048
  31. ROXICODONE [Concomitant]
     Indication: BREAKTHROUGH PAIN
     Dosage: 30 MG, TID
     Route: 048
  32. FENTANYL                           /00174602/ [Concomitant]
     Indication: PAIN MANAGEMENT
     Dosage: 300 UG, QD
     Route: 062
     Dates: start: 20100607
  33. OXYCONTIN [Concomitant]
     Indication: PAIN MANAGEMENT
     Dosage: 2 TAB, TID
     Route: 048
     Dates: start: 20100607

REACTIONS (2)
  - DISORIENTATION [None]
  - PANCREATITIS [None]
